FAERS Safety Report 6838177-0 (Version None)
Quarter: 2010Q3

REPORT INFORMATION
  Report Type: 
  Country: None (occurrence: None)
  Receive Date: 20100713
  Receipt Date: 20070603
  Transmission Date: 20110219
  Serious: No
  Sender: FDA-Public Use
  Company Number: US-PFIZER INC-2007046329

PATIENT
  Sex: Male
  Weight: 81.8 kg

DRUGS (4)
  1. CHANTIX [Suspect]
     Indication: SMOKING CESSATION THERAPY
     Dates: start: 20070524
  2. TYLENOL [Concomitant]
  3. CODEINE [Concomitant]
     Dates: start: 20070501
  4. MOTRIN [Concomitant]

REACTIONS (2)
  - PRURITUS [None]
  - RASH PAPULAR [None]
